FAERS Safety Report 6838002-8 (Version None)
Quarter: 2010Q3

REPORT INFORMATION
  Report Type: 
  Country: None (occurrence: None)
  Receive Date: 20100713
  Receipt Date: 20070501
  Transmission Date: 20110219
  Serious: No
  Sender: FDA-Public Use
  Company Number: US-PFIZER INC-2007035050

PATIENT
  Age: 68 Year
  Sex: Male

DRUGS (8)
  1. CHANTIX [Suspect]
     Indication: SMOKING CESSATION THERAPY
     Dates: start: 20070101, end: 20070101
  2. NEXIUM [Concomitant]
  3. COREG [Concomitant]
  4. ACETYLSALICYLIC ACID [Concomitant]
  5. SINGULAIR [Concomitant]
  6. LIPITOR [Concomitant]
  7. ADVAIR DISKUS 100/50 [Concomitant]
  8. PLAVIX [Concomitant]

REACTIONS (1)
  - DRUG INEFFECTIVE [None]
